FAERS Safety Report 9018455 (Version 1)
Quarter: 2013Q1

REPORT INFORMATION
  Report Type: Spontaneous
  Country: US (occurrence: None)
  Receive Date: 20130111
  Receipt Date: 20130111
  Transmission Date: 20140127
  Serious: Yes (Other)
  Sender: FDA-Public Use
  Company Number: None

PATIENT
  Sex: Male
  Weight: 95.26 kg

DRUGS (1)
  1. GEODON [Suspect]
     Indication: BIPOLAR DISORDER
     Dosage: 60MG TWICE DAILY PO
     Route: 048
     Dates: start: 20110801, end: 20130108

REACTIONS (3)
  - Nausea [None]
  - Headache [None]
  - Eye disorder [None]
